FAERS Safety Report 9280573 (Version 2)
Quarter: 2013Q3

REPORT INFORMATION
  Report Type: Spontaneous
  Country: DE (occurrence: DE)
  Receive Date: 20130509
  Receipt Date: 20130906
  Transmission Date: 20140515
  Serious: Yes (Other)
  Sender: FDA-Public Use
  Company Number: DE-UCBSA-084905

PATIENT
  Age: 26 Year
  Sex: Female
  Weight: 63 kg

DRUGS (7)
  1. VIMPAT [Suspect]
     Indication: EPILEPSY
     Route: 048
     Dates: start: 20130419
  2. KEPPRA [Suspect]
     Indication: EPILEPSY
     Route: 048
     Dates: start: 201111
  3. KEPPRA [Suspect]
     Indication: EPILEPSY
     Dosage: 500 MG, 1X
  4. TRAMAL STADA [Concomitant]
     Indication: COMPLEX REGIONAL PAIN SYNDROME
     Route: 048
     Dates: start: 201107
  5. VERSATIS [Concomitant]
     Indication: COMPLEX REGIONAL PAIN SYNDROME
     Dosage: PATCH
     Dates: start: 201204
  6. TELFAST SANOFI AVENTIS [Concomitant]
     Indication: SEASONAL ALLERGY
     Route: 048
     Dates: start: 201205
  7. DERMATOP [Concomitant]
     Route: 048
     Dates: start: 201204

REACTIONS (4)
  - Rash [Unknown]
  - Hiccups [Unknown]
  - Drug hypersensitivity [Unknown]
  - Inappropriate schedule of drug administration [Unknown]
